FAERS Safety Report 25150679 (Version 2)
Quarter: 2025Q2

REPORT INFORMATION
  Report Type: Spontaneous
  Country: US (occurrence: US)
  Receive Date: 20250402
  Receipt Date: 20250404
  Transmission Date: 20250716
  Serious: No
  Sender: Haleon PLC
  Company Number: US-HALEON-2236272

PATIENT

DRUGS (2)
  1. ALLI [Suspect]
     Active Substance: ORLISTAT
     Indication: Weight decreased
  2. ALLI [Suspect]
     Active Substance: ORLISTAT

REACTIONS (3)
  - Drug ineffective [Unknown]
  - Product counterfeit [Unknown]
  - Therapeutic response unexpected [Unknown]
